FAERS Safety Report 26137829 (Version 1)
Quarter: 2025Q4

REPORT INFORMATION
  Report Type: Spontaneous
  Country: EU (occurrence: EU)
  Receive Date: 20251210
  Receipt Date: 20251210
  Transmission Date: 20260118
  Serious: Yes (Hospitalization, Other)
  Sender: ABBVIE
  Company Number: EU-BRISTOL-MYERS SQUIBB COMPANY-2025-142808

PATIENT
  Age: 80 Year
  Sex: Male
  Weight: 68.3 kg

DRUGS (15)
  1. VENETOCLAX [Suspect]
     Active Substance: VENETOCLAX
     Indication: Acute myeloid leukaemia
     Dosage: D1C2
     Route: 065
     Dates: start: 20250425
  2. VENETOCLAX [Suspect]
     Active Substance: VENETOCLAX
     Indication: Acute myeloid leukaemia
     Dosage: D1C1 (DAY1CYCLE1)
     Route: 065
     Dates: start: 20250318
  3. PANTOPRAZOLE [Concomitant]
     Active Substance: PANTOPRAZOLE
     Indication: Product used for unknown indication
     Dosage: 1 MIDDAY TABLET
     Route: 065
  4. GAVISCON [Concomitant]
     Active Substance: ALUMINUM HYDROXIDE\MAGNESIUM CARBONATE
     Indication: Abdominal pain upper
     Dosage: 1 SACHET PER DOSE
     Route: 065
  5. FILGRASTIM [Concomitant]
     Active Substance: FILGRASTIM
     Indication: Product used for unknown indication
     Route: 058
  6. METFORMIN [Concomitant]
     Active Substance: METFORMIN HYDROCHLORIDE
     Indication: Product used for unknown indication
     Dosage: 1 TABLET IN THE MORNING, 1 TABLET AT BEDTIME
     Route: 065
  7. VIDAZA [Suspect]
     Active Substance: AZACITIDINE
     Indication: Acute myeloid leukaemia
     Dosage: D1C2
     Route: 065
     Dates: start: 20250425
  8. VIDAZA [Suspect]
     Active Substance: AZACITIDINE
     Indication: Acute myeloid leukaemia
     Dosage: D1C1 (DAY1CYCLE1)
     Route: 065
     Dates: start: 20250318
  9. Multienzyme [Concomitant]
     Indication: Product used for unknown indication
     Dosage: 1 CAPSULE IN THE MORNING, 1 CAPSULE AT NOON, 1 CAPSULE AT BEDTIME
     Route: 065
  10. GRANULOCYTE COLONY-STIMULATING FACTOR NOS [Suspect]
     Active Substance: GRANULOCYTE COLONY-STIMULATING FACTOR NOS
     Indication: Neutropenia
     Route: 065
  11. SODIUM BICARBONATE [Concomitant]
     Active Substance: SODIUM BICARBONATE
     Indication: Product used for unknown indication
     Dosage: ONE MOUTHWASH/8 HRS
     Route: 065
  12. POSACONAZOLE [Concomitant]
     Active Substance: POSACONAZOLE
     Indication: Product used for unknown indication
     Dosage: 300 MG MORNING AND EVENING ON THE FIRST DAY THEN 300 MG IN THE MORNING
     Route: 065
  13. ERYTHROPOIETIN [Concomitant]
     Active Substance: ERYTHROPOIETIN
     Indication: Product used for unknown indication
     Dosage: INJECTION/WEEK ON WEDNESDAY
     Route: 058
  14. LERCANIDIPINE [Concomitant]
     Active Substance: LERCANIDIPINE
     Indication: Product used for unknown indication
     Dosage: 1 TABLET IN THE MORNING
     Route: 065
  15. CREON [Concomitant]
     Active Substance: PANCRELIPASE AMYLASE\PANCRELIPASE LIPASE\PANCRELIPASE PROTEASE
     Indication: Product used for unknown indication
     Dosage: 25000U
     Route: 065

REACTIONS (30)
  - Gastrointestinal haemorrhage [Unknown]
  - Treatment failure [Unknown]
  - Oral candidiasis [Recovered/Resolved]
  - Febrile neutropenia [Unknown]
  - Neutrophilic dermatosis [Unknown]
  - Hypomagnesaemia [Unknown]
  - Hypokalaemia [Unknown]
  - Oesophageal candidiasis [Recovered/Resolved]
  - Tonsillitis [Unknown]
  - Hyphaema [Recovered/Resolved]
  - Hypoalbuminaemia [Unknown]
  - Nausea [Unknown]
  - Appendicitis [Unknown]
  - Taste disorder [Unknown]
  - Hiatus hernia [Unknown]
  - Oedema peripheral [Unknown]
  - Intestinal sepsis [Unknown]
  - Hyponatraemia [Recovered/Resolved]
  - Injection site haematoma [Unknown]
  - Oesophagitis ulcerative [Recovered/Resolved]
  - Vomiting [Unknown]
  - Malnutrition [Unknown]
  - Cytopenia [Unknown]
  - Inflammation [Recovering/Resolving]
  - Bone marrow failure [Unknown]
  - Weight decreased [Unknown]
  - Asthenia [Unknown]
  - Decreased appetite [Unknown]
  - Gastritis [Unknown]
  - Lymphadenopathy [Unknown]

NARRATIVE: CASE EVENT DATE: 20250301
